FAERS Safety Report 5144753-6 (Version None)
Quarter: 2006Q4

REPORT INFORMATION
  Report Type: 
  Country: None (occurrence: None)
  Receive Date: 20061107
  Receipt Date: 20061026
  Transmission Date: 20070319
  Serious: Yes (Hospitalization)
  Sender: FDA-Public Use
  Company Number: US-JNJFOC-20060801738

PATIENT
  Sex: Female
  Weight: 80.06 kg

DRUGS (5)
  1. REMICADE [Suspect]
     Indication: CROHN'S DISEASE
     Route: 042
  2. LEXAPRO [Concomitant]
  3. VICODIN ES [Concomitant]
     Dosage: 3 TO 4 TABLETS/DAY
  4. IMURAN [Concomitant]
     Dosage: DID NOT TAKE FOR 1 WEEK PRIOR TO HOSPITALIZATION
  5. ALBUTEROL [Concomitant]

REACTIONS (12)
  - ANAPHYLACTIC REACTION [None]
  - ATELECTASIS [None]
  - CHRONIC OBSTRUCTIVE PULMONARY DISEASE [None]
  - CONDITION AGGRAVATED [None]
  - CRYPTOGENIC ORGANISING PNEUMONIA [None]
  - ELECTROCARDIOGRAM ST-T CHANGE [None]
  - HYPOTENSION [None]
  - INTERSTITIAL LUNG DISEASE [None]
  - PLEURAL EFFUSION [None]
  - SINUS TACHYCARDIA [None]
  - SLEEP APNOEA SYNDROME [None]
  - SYNCOPE [None]
